FAERS Safety Report 5647165-1 (Version None)
Quarter: 2008Q1

REPORT INFORMATION
  Report Type: 
  Country: None (occurrence: None)
  Receive Date: 20080228
  Receipt Date: 20080228
  Transmission Date: 20080703
  Serious: Yes (Hospitalization)
  Sender: FDA-Public Use
  Company Number: None

PATIENT
  Sex: Female
  Weight: 78.47 kg

DRUGS (2)
  1. CARBOPLATIN [Suspect]
     Dosage: 591 MG
  2. TAXOL [Suspect]
     Dosage: 315 MG

REACTIONS (1)
  - FEBRILE NEUTROPENIA [None]
